FAERS Safety Report 19868241 (Version 1)
Quarter: 2021Q3

REPORT INFORMATION
  Report Type: Spontaneous
  Country: US (occurrence: US)
  Receive Date: 20210921
  Receipt Date: 20210921
  Transmission Date: 20211014
  Serious: No
  Sender: FDA-Public Use
  Company Number: US-BRAINTREE LABORATORIES, INC.-2021BTE00563

PATIENT
  Age: 53 Year
  Sex: Female
  Weight: 93.42 kg

DRUGS (4)
  1. OMEGA 3 SUPPLEMENT [Concomitant]
  2. ANTI?NAUSEA MEDICATION (NON?COMPANY PRODUCT) [Suspect]
     Active Substance: UNSPECIFIED INGREDIENT
     Dosage: 30 MINUTES BEFORE SUPREP
     Dates: start: 202107, end: 202107
  3. CALCIUM SUPPLEMENT [Concomitant]
     Active Substance: CALCIUM
  4. SUPREP BOWEL PREP [Suspect]
     Active Substance: MAGNESIUM SULFATE\POTASSIUM SULFATE\SODIUM SULFATE
     Indication: COLONOSCOPY
     Dosage: 2 X 6 OZ. BOTTLE, 1X
     Route: 048
     Dates: start: 20210706, end: 20210707

REACTIONS (2)
  - Wrong technique in product usage process [Recovered/Resolved]
  - Drug ineffective [Recovered/Resolved]

NARRATIVE: CASE EVENT DATE: 20210707
